FAERS Safety Report 21966841 (Version 1)
Quarter: 2023Q1

REPORT INFORMATION
  Report Type: Spontaneous
  Country: US (occurrence: US)
  Receive Date: 20230208
  Receipt Date: 20230208
  Transmission Date: 20230418
  Serious: Yes (Other)
  Sender: FDA-Public Use
  Company Number: US-SAMSUNG BIOEPIS-SB-2023-03244

PATIENT
  Age: 2 Month
  Sex: Male

DRUGS (1)
  1. INFLIXIMAB [Suspect]
     Active Substance: INFLIXIMAB
     Indication: Crohn^s disease
     Dosage: UNKNOWN
     Route: 064

REACTIONS (4)
  - Lymphadenitis [Unknown]
  - Infection [Unknown]
  - Foetal exposure during pregnancy [Unknown]
  - Drug level increased [Unknown]
